APPROVED DRUG PRODUCT: ZEGFROVY
Active Ingredient: SUNVOZERTINIB
Strength: 200MG
Dosage Form/Route: TABLET;ORAL
Application: N219839 | Product #002
Applicant: DIZAL (JIANGSU) PHARMACEUTICAL CO LTD
Approved: Jul 2, 2025 | RLD: Yes | RS: Yes | Type: RX

PATENTS:
Patent 11504375 | Expires: Jan 28, 2039
Patent 11896597 | Expires: Jan 28, 2039
Patent 11007198 | Expires: Jan 28, 2039

EXCLUSIVITY:
Code: NCE | Date: Jul 2, 2030